FAERS Safety Report 18233996 (Version 1)
Quarter: 2020Q3

REPORT INFORMATION
  Report Type: Spontaneous
  Country: FR (occurrence: FR)
  Receive Date: 20200904
  Receipt Date: 20200904
  Transmission Date: 20201103
  Serious: Yes (Hospitalization)
  Sender: FDA-Public Use
  Company Number: FR-TEVA-2020-FR-1822873

PATIENT
  Age: 20 Year
  Sex: Male

DRUGS (3)
  1. CLONAZEPAM. [Suspect]
     Active Substance: CLONAZEPAM
     Route: 065
  2. SERESTA [Suspect]
     Active Substance: OXAZEPAM
     Route: 065
  3. PREGABALINE [Suspect]
     Active Substance: PREGABALIN
     Route: 065

REACTIONS (4)
  - Miosis [Recovered/Resolved]
  - Agitation [Recovered/Resolved]
  - Drug use disorder [Unknown]
  - Altered state of consciousness [Recovered/Resolved]
